FAERS Safety Report 8965261 (Version 1)
Quarter: 2012Q4

REPORT INFORMATION
  Report Type: 
  Country: US (occurrence: US)
  Receive Date: 20121213
  Receipt Date: 20121213
  Transmission Date: 20130627
  Serious: No
  Sender: FDA-Public Use
  Company Number: US-009507513-1212USA004086

PATIENT
  Age: 66 Year
  Sex: Female
  Weight: 136.96 kg

DRUGS (1)
  1. LISINOPRIL [Suspect]
     Indication: BLOOD PRESSURE
     Dosage: UNK
     Dates: start: 2007, end: 2007

REACTIONS (1)
  - Angioedema [Unknown]
